FAERS Safety Report 18569696 (Version 1)
Quarter: 2020Q4

REPORT INFORMATION
  Report Type: Spontaneous
  Country: AR (occurrence: AR)
  Receive Date: 20201202
  Receipt Date: 20201202
  Transmission Date: 20210114
  Serious: Yes (Other)
  Sender: FDA-Public Use
  Company Number: AR-PFIZER INC-2020472795

PATIENT
  Age: 59 Year
  Sex: Female

DRUGS (1)
  1. XELJANZ XR [Suspect]
     Active Substance: TOFACITINIB CITRATE
     Indication: RHEUMATOID ARTHRITIS
     Dosage: 11 MG, 1X/DAY
     Dates: start: 20180201

REACTIONS (7)
  - Nerve compression [Unknown]
  - Pain [Unknown]
  - Peripheral swelling [Unknown]
  - Mass [Unknown]
  - Sleep disorder [Unknown]
  - Dysstasia [Unknown]
  - Foot deformity [Unknown]

NARRATIVE: CASE EVENT DATE: 2019
